FAERS Safety Report 4418140-X (Version None)
Quarter: 2004Q3

REPORT INFORMATION
  Report Type: 
  Country: None (occurrence: None)
  Receive Date: 20040805
  Receipt Date: 20040805
  Transmission Date: 20050211
  Serious: Yes (Hospitalization)
  Sender: FDA-Public Use
  Company Number: None

PATIENT
  Sex: Female

DRUGS (2)
  1. PROLEUKIN [Suspect]
     Indication: MALIGNANT MELANOMA
     Dosage: 3 MU SC
     Route: 058
     Dates: start: 20010803, end: 20010831
  2. INTERFERON [Suspect]
     Indication: MALIGNANT MELANOMA
     Dosage: 10 MU/M2 SC
     Route: 058
     Dates: start: 20010729, end: 20010802

REACTIONS (1)
  - SUICIDE ATTEMPT [None]
